FAERS Safety Report 13629503 (Version 1)
Quarter: 2017Q2

REPORT INFORMATION
  Report Type: Spontaneous
  Country: US (occurrence: US)
  Receive Date: 20170531
  Receipt Date: 20170531
  Transmission Date: 20170830
  Serious: No
  Sender: FDA-Public Use
  Company Number: US-ASTELLAS-1203321

PATIENT
  Sex: Female

DRUGS (11)
  1. ISOSORBIDE. [Concomitant]
     Active Substance: ISOSORBIDE
  2. VALIUM [Concomitant]
     Active Substance: DIAZEPAM
  3. LATANOPROST. [Concomitant]
     Active Substance: LATANOPROST
     Indication: GLAUCOMA
  4. PLAVIX [Concomitant]
     Active Substance: CLOPIDOGREL BISULFATE
  5. TRMA ENZYMES [Concomitant]
     Indication: ABDOMINAL DISCOMFORT
  6. EYE DROP (UNK INGREDIENTS) [Concomitant]
  7. TARCEVA [Suspect]
     Active Substance: ERLOTINIB HYDROCHLORIDE
     Indication: LUNG NEOPLASM MALIGNANT
     Route: 065
  8. TARCEVA [Suspect]
     Active Substance: ERLOTINIB HYDROCHLORIDE
     Route: 065
     Dates: start: 20130311
  9. HCTZ [Concomitant]
     Active Substance: HYDROCHLOROTHIAZIDE
  10. METOPROLOL. [Concomitant]
     Active Substance: METOPROLOL
  11. MELATONIN [Concomitant]
     Active Substance: MELATONIN

REACTIONS (2)
  - Diarrhoea [Recovering/Resolving]
  - Rash [Unknown]
